FAERS Safety Report 4664771-1 (Version None)
Quarter: 2005Q2

REPORT INFORMATION
  Report Type: 
  Country: None (occurrence: None)
  Receive Date: 20050517
  Receipt Date: 20050517
  Transmission Date: 20051028
  Serious: Yes (Hospitalization)
  Sender: FDA-Public Use
  Company Number: None

PATIENT
  Age: 85 Year
  Sex: Male

DRUGS (1)
  1. METRONIDAZOLE [Suspect]
     Indication: CLOSTRIDIAL INFECTION
     Dosage: 500MG TID PO
     Route: 048
     Dates: start: 20050311, end: 20050315

REACTIONS (2)
  - NAUSEA [None]
  - RETCHING [None]
